FAERS Safety Report 7125429-2 (Version None)
Quarter: 2010Q4

REPORT INFORMATION
  Report Type: 
  Country: None (occurrence: None)
  Receive Date: 20101129
  Receipt Date: 20101126
  Transmission Date: 20110411
  Serious: Yes (Death)
  Sender: FDA-Public Use
  Company Number: PHHY2010DE79558

PATIENT
  Sex: Female
  Weight: 60 kg

DRUGS (1)
  1. ZOLEDRONATE T29581+ [Suspect]
     Indication: PROPHYLAXIS
     Dosage: 4 MG EVERY 4 WEEKS
     Route: 042
     Dates: start: 20091229, end: 20091229

REACTIONS (1)
  - DEATH [None]
